FAERS Safety Report 8289929-4 (Version None)
Quarter: 2012Q2

REPORT INFORMATION
  Report Type: 
  Country: None (occurrence: None)
  Receive Date: 20120417
  Receipt Date: 20120409
  Transmission Date: 20120825
  Serious: Yes (Hospitalization)
  Sender: FDA-Public Use
  Company Number: US-US-EMD SERONO, INC.-7125320

PATIENT
  Sex: Female

DRUGS (1)
  1. REBIF [Suspect]
     Indication: MULTIPLE SCLEROSIS
     Route: 058
     Dates: start: 20071009, end: 20120301

REACTIONS (5)
  - FOOT FRACTURE [None]
  - HYPOAESTHESIA [None]
  - FALL [None]
  - INTERVERTEBRAL DISC DEGENERATION [None]
  - URINARY INCONTINENCE [None]
